FAERS Safety Report 8552730-8 (Version None)
Quarter: 2012Q3

REPORT INFORMATION
  Report Type: 
  Country: None (occurrence: None)
  Receive Date: 20120731
  Receipt Date: 20120724
  Transmission Date: 20120928
  Serious: Yes (Hospitalization)
  Sender: FDA-Public Use
  Company Number: PHHY2012FR064926

PATIENT
  Sex: Male

DRUGS (5)
  1. LORAZEPAM [Concomitant]
     Dosage: 3 MG, DAILY
     Dates: start: 20070101
  2. TERCIAN [Suspect]
     Dosage: UNK UKN, UNK
  3. TERCIAN [Suspect]
     Dosage: 25 MG, 4 TIMES DAILY
     Dates: start: 20080101, end: 20120617
  4. CLOZAPINE [Suspect]
     Dosage: 300 MG, QD
     Dates: start: 20100414, end: 20120617
  5. EFFEXOR [Suspect]
     Dosage: 75 MG, QD
     Dates: start: 20120101

REACTIONS (4)
  - PHARYNGEAL ERYTHEMA [None]
  - PYREXIA [None]
  - AGRANULOCYTOSIS [None]
  - OROPHARYNGEAL PAIN [None]
